FAERS Safety Report 23197835 (Version 8)
Quarter: 2024Q2

REPORT INFORMATION
  Report Type: Report from Study
  Country: BE (occurrence: BE)
  Receive Date: 20231117
  Receipt Date: 20240501
  Transmission Date: 20240716
  Serious: Yes (Hospitalization, Other)
  Sender: FDA-Public Use
  Company Number: BE-JNJFOC-20230739812

PATIENT
  Age: 6 Decade
  Sex: Male
  Weight: 80 kg

DRUGS (21)
  1. MACITENTAN [Suspect]
     Active Substance: MACITENTAN
     Indication: Pulmonary arterial hypertension
     Route: 048
     Dates: start: 20220715
  2. EPOPROSTENOL SODIUM [Suspect]
     Active Substance: EPOPROSTENOL SODIUM
     Indication: Pulmonary arterial hypertension
     Dosage: TOTAL DAILY DOSE 12.5
     Route: 042
     Dates: start: 20230125, end: 20230208
  3. EPOPROSTENOL SODIUM [Suspect]
     Active Substance: EPOPROSTENOL SODIUM
     Dosage: TOTAL DAILY DOSE 12
     Route: 042
     Dates: start: 20230117, end: 20230125
  4. EPOPROSTENOL SODIUM [Suspect]
     Active Substance: EPOPROSTENOL SODIUM
     Dosage: TOTAL DAILY DOSE 11.5
     Route: 042
     Dates: start: 20220920, end: 20230117
  5. EPOPROSTENOL SODIUM [Suspect]
     Active Substance: EPOPROSTENOL SODIUM
     Dosage: TOTAL DAILY DOSE 12
     Route: 042
     Dates: start: 20220912, end: 20220920
  6. EPOPROSTENOL SODIUM [Suspect]
     Active Substance: EPOPROSTENOL SODIUM
     Dosage: TOTAL DAILY DOSE 11.5
     Route: 042
     Dates: start: 20220829, end: 20220912
  7. EPOPROSTENOL SODIUM [Suspect]
     Active Substance: EPOPROSTENOL SODIUM
     Dosage: TOTAL DAILY DOSE 11
     Route: 042
     Dates: start: 20220823, end: 20220829
  8. EPOPROSTENOL SODIUM [Suspect]
     Active Substance: EPOPROSTENOL SODIUM
     Dosage: TOTAL DAILY DOSE 10.5
     Route: 042
     Dates: start: 20220817, end: 20220823
  9. EPOPROSTENOL SODIUM [Suspect]
     Active Substance: EPOPROSTENOL SODIUM
     Dosage: TOTAL DAILY DOSE 10
     Route: 042
     Dates: start: 20220727, end: 20220817
  10. EPOPROSTENOL SODIUM [Suspect]
     Active Substance: EPOPROSTENOL SODIUM
     Dosage: TOTAL DAILY DOSE 8
     Route: 042
     Dates: start: 20220720, end: 20220727
  11. EPOPROSTENOL SODIUM [Suspect]
     Active Substance: EPOPROSTENOL SODIUM
     Dosage: TOTAL DAILY DOSE 7
     Route: 042
     Dates: start: 20220719, end: 20220720
  12. EPOPROSTENOL SODIUM [Suspect]
     Active Substance: EPOPROSTENOL SODIUM
     Dosage: TOTAL DAILY DOSE 6
     Route: 042
     Dates: start: 20220715, end: 20220719
  13. EPOPROSTENOL SODIUM [Suspect]
     Active Substance: EPOPROSTENOL SODIUM
     Dosage: TOTAL DAILY DOSE 2
     Route: 042
     Dates: start: 20220713, end: 20220715
  14. EPOPROSTENOL SODIUM [Suspect]
     Active Substance: EPOPROSTENOL SODIUM
     Route: 042
     Dates: start: 20230221, end: 20231017
  15. EPOPROSTENOL SODIUM [Suspect]
     Active Substance: EPOPROSTENOL SODIUM
     Route: 042
     Dates: start: 20231014, end: 20231024
  16. EPOPROSTENOL SODIUM [Suspect]
     Active Substance: EPOPROSTENOL SODIUM
     Route: 042
     Dates: start: 20231024
  17. EPOPROSTENOL SODIUM [Suspect]
     Active Substance: EPOPROSTENOL SODIUM
     Route: 042
     Dates: start: 20230208, end: 20230221
  18. JARDIANCE [Suspect]
     Active Substance: EMPAGLIFLOZIN
     Indication: Product used for unknown indication
     Route: 065
  19. TADALAFIL [Concomitant]
     Active Substance: TADALAFIL
     Indication: Pulmonary arterial hypertension
     Route: 048
     Dates: start: 20220718
  20. BILASTINE [Concomitant]
     Active Substance: BILASTINE
  21. ATARAX [Concomitant]
     Active Substance: HYDROXYZINE HYDROCHLORIDE

REACTIONS (16)
  - Gastritis haemorrhagic [Not Recovered/Not Resolved]
  - Renal impairment [Not Recovered/Not Resolved]
  - Biopsy kidney [Unknown]
  - Thrombocytopenia [Recovered/Resolved]
  - Left ventricular failure [Recovered/Resolved]
  - Supraventricular tachycardia [Recovered/Resolved]
  - Atrial flutter [Recovered/Resolved with Sequelae]
  - Abdominal pain lower [Not Recovered/Not Resolved]
  - Pruritus [Recovering/Resolving]
  - Vertigo [Not Recovered/Not Resolved]
  - Polydipsia [Recovering/Resolving]
  - Asthenia [Not Recovered/Not Resolved]
  - Hypersomnia [Not Recovered/Not Resolved]
  - Cardiomegaly [Unknown]
  - Rash [Not Recovered/Not Resolved]
  - Abdominal pain upper [Not Recovered/Not Resolved]

NARRATIVE: CASE EVENT DATE: 20230119
